FAERS Safety Report 8563504-6 (Version None)
Quarter: 2012Q3

REPORT INFORMATION
  Report Type: 
  Country: None (occurrence: None)
  Receive Date: 20120802
  Receipt Date: 20120723
  Transmission Date: 20120928
  Serious: Yes (Other)
  Sender: FDA-Public Use
  Company Number: US-009507513-1205USA00558

PATIENT

DRUGS (24)
  1. LIPITOR [Suspect]
     Dosage: 10 MG, QID
  2. CYCLOCORT [Concomitant]
  3. PERSANTINE [Concomitant]
     Dosage: 75 MG, QID
  4. UBIDECARENONE [Concomitant]
     Dosage: 10 MG, QID
  5. SPIRIVA [Concomitant]
     Dosage: 18 ?G, QD
  6. BENADRYL [Concomitant]
     Dosage: 1 DF, BID
  7. MEVACOR [Concomitant]
     Dosage: UNK UNK, QID
     Route: 048
  8. LORAZEPAM [Concomitant]
     Dosage: 1MG HALF TABLET
  9. JANUVIA [Concomitant]
     Dosage: UNK
     Route: 048
  10. LIPITOR [Suspect]
     Indication: BLOOD CHOLESTEROL ABNORMAL
     Dosage: 20 MG, UNK
     Route: 048
     Dates: start: 19930101
  11. METOPROLOL TARTRATE [Concomitant]
     Dosage: 50 MG,ONE AND HALF TABLET, BID
     Route: 048
  12. GLYBURIDE [Concomitant]
     Dosage: 5 MG, 4 TABLETS,DAILY
  13. ZANAFLEX [Concomitant]
     Dosage: 4 MG, QID
  14. ASPIRIN [Concomitant]
     Dosage: 325 MG, QD
  15. DIOVAN HCT [Concomitant]
     Dosage: 320MG-25MG, DAILY
  16. HYDROCHLOROTHIAZIDE [Concomitant]
     Dosage: 50 MG, PRN
     Route: 048
  17. MIRAPEX [Concomitant]
     Dosage: 0.5 MG 4 TABLETS DAILY
  18. VITAMIN B COMPLEX CAP [Concomitant]
     Dosage: UNK UNK, DAILY
  19. FLEXERIL [Concomitant]
     Dosage: 5 MG, PRN
  20. ZOCOR [Suspect]
     Indication: BLOOD CHOLESTEROL ABNORMAL
     Route: 048
  21. ATROVENT [Concomitant]
     Dosage: 0.03 %, BID
     Route: 045
  22. GARLIC [Concomitant]
     Dosage: 1 CAPSULE, DAILY
  23. BUMETANIDE [Concomitant]
     Dosage: UNK
  24. LOPERAMIDE HCL [Concomitant]
     Dosage: 2 MG, PRN

REACTIONS (11)
  - MUSCLE SPASMS [None]
  - MUSCLE FATIGUE [None]
  - MUSCULOSKELETAL STIFFNESS [None]
  - AMNESIA [None]
  - BRAIN STEM STROKE [None]
  - HEADACHE [None]
  - ABDOMINAL DISCOMFORT [None]
  - MUSCLE ATROPHY [None]
  - HYPERSENSITIVITY [None]
  - MEMORY IMPAIRMENT [None]
  - ADVERSE EVENT [None]
